FAERS Safety Report 4585820-5 (Version None)
Quarter: 2005Q1

REPORT INFORMATION
  Report Type: 
  Country: None (occurrence: None)
  Receive Date: 20050125
  Receipt Date: 20040920
  Transmission Date: 20050727
  Serious: No
  Sender: FDA-Public Use
  Company Number: USA040978670

PATIENT
  Age: 74 Year
  Sex: Female
  Weight: 48 kg

DRUGS (19)
  1. FORTEO [Suspect]
     Indication: OSTEOPOROSIS
     Dosage: 20 UG/1 DAY
     Dates: start: 20040914
  2. CALCIUM CITRATE WITH VITAMIN D [Concomitant]
  3. METHADONE HCL [Concomitant]
  4. ACCUPRIL [Concomitant]
  5. CRESTOR [Concomitant]
  6. SYNTHROID [Concomitant]
  7. SKELAXIN [Concomitant]
  8. DIGOXIN [Concomitant]
  9. VERAPAMIL [Concomitant]
  10. VIOXX [Concomitant]
  11. XANAX (ALPRAZOLAM DUM) [Concomitant]
  12. VALIUM [Concomitant]
  13. ASPIRIN [Concomitant]
  14. VITAMIN E [Concomitant]
  15. MULTI-VITAMIN [Concomitant]
  16. FISH OIL [Concomitant]
  17. GLUCOSAMINE CHONDROITAN [Concomitant]
  18. DIGESTIVE ADVANTAGE SUPPLEMENT [Concomitant]
  19. ALPHA LIPOIC ACID [Concomitant]

REACTIONS (5)
  - ARTHRALGIA [None]
  - FEELING ABNORMAL [None]
  - INSOMNIA [None]
  - NAUSEA [None]
  - PAIN IN EXTREMITY [None]
